FAERS Safety Report 7644836-2 (Version None)
Quarter: 2011Q3

REPORT INFORMATION
  Report Type: 
  Country: None (occurrence: None)
  Receive Date: 20110729
  Receipt Date: 20110725
  Transmission Date: 20111222
  Serious: Yes (Other)
  Sender: FDA-Public Use
  Company Number: US-PFIZER INC-2010002914

PATIENT
  Sex: Male
  Weight: 97 kg

DRUGS (2)
  1. NARDIL [Suspect]
     Indication: DEPRESSION
     Dosage: 15 MG, 3X/DAY
     Route: 048
     Dates: end: 20090720
  2. NARDIL [Suspect]
     Dosage: UNK
     Dates: start: 20091130

REACTIONS (3)
  - UMBILICAL HERNIA [None]
  - HEADACHE [None]
  - HYPERTENSION [None]
